FAERS Safety Report 10461777 (Version 1)
Quarter: 2014Q3

REPORT INFORMATION
  Report Type: Spontaneous
  Country: US (occurrence: None)
  Receive Date: 20140917
  Receipt Date: 20140917
  Transmission Date: 20150326
  Serious: Yes (Other)
  Sender: FDA-Public Use
  Company Number: None

PATIENT
  Age: 62 Year
  Sex: Female

DRUGS (1)
  1. LITHIUM CARBONATE ER [Suspect]
     Active Substance: LITHIUM CARBONATE
     Indication: BIPOLAR I DISORDER
     Route: 048
     Dates: start: 20130312, end: 201305

REACTIONS (7)
  - Product substitution issue [None]
  - Decreased activity [None]
  - Feeling abnormal [None]
  - Restlessness [None]
  - Unevaluable event [None]
  - Mood swings [None]
  - Anger [None]

NARRATIVE: CASE EVENT DATE: 201303
